FAERS Safety Report 14274303 (Version 1)
Quarter: 2017Q4

REPORT INFORMATION
  Report Type: Report from Study
  Country: US (occurrence: US)
  Receive Date: 20171212
  Receipt Date: 20171212
  Transmission Date: 20180321
  Serious: Yes (Other)
  Sender: FDA-Public Use
  Company Number: US-ASTELLAS-2017US043650

PATIENT
  Sex: Male

DRUGS (14)
  1. AVODART [Concomitant]
     Active Substance: DUTASTERIDE
     Indication: PRODUCT USED FOR UNKNOWN INDICATION
     Dosage: UNK UNK, UNKNOWN FREQ.
     Route: 065
  2. NEXIUM [Concomitant]
     Active Substance: ESOMEPRAZOLE MAGNESIUM
     Indication: GASTROOESOPHAGEAL REFLUX DISEASE
     Route: 065
  3. METOPROLOL TARTRATE. [Concomitant]
     Active Substance: METOPROLOL TARTRATE
     Indication: BLOOD PRESSURE MEASUREMENT
     Route: 065
  4. ERLOTINIB [Suspect]
     Active Substance: ERLOTINIB
     Indication: TONSIL CANCER
     Route: 048
  5. AVASTIN [Suspect]
     Active Substance: BEVACIZUMAB
     Route: 065
  6. AVASTIN [Suspect]
     Active Substance: BEVACIZUMAB
  7. ZITHROMAX [Concomitant]
     Active Substance: AZITHROMYCIN DIHYDRATE
     Indication: INFECTION
     Dosage: UNK UNK, UNKNOWN FREQ.
     Route: 065
  8. JEVITY                             /07473301/ [Concomitant]
     Active Substance: DIETARY SUPPLEMENT
     Indication: NUTRITIONAL SUPPLEMENTATION
     Dosage: UNK UNK, ONCE DAILY (4 CANS A DAY VIA PEG TUBE)
     Route: 051
  9. CEPHALEXIN                         /00145501/ [Concomitant]
     Active Substance: CEPHALEXIN
     Indication: INFECTION
     Route: 065
  10. AVASTIN [Suspect]
     Active Substance: BEVACIZUMAB
     Route: 065
  11. TAMULOSIN [Concomitant]
     Active Substance: TAMSULOSIN
     Indication: PROSTATOMEGALY
  12. TAMULOSIN [Concomitant]
     Active Substance: TAMSULOSIN
     Indication: PRODUCT USED FOR UNKNOWN INDICATION
     Dosage: UNK UNK, UNKNOWN FREQ.
     Route: 065
  13. AVASTIN [Suspect]
     Active Substance: BEVACIZUMAB
     Indication: TONSIL CANCER
     Dosage: 15 MG/KG, ONCE IN 21 DAYS
     Route: 065
  14. AMLODIPINE [Concomitant]
     Active Substance: AMLODIPINE BESYLATE
     Indication: PRODUCT USED FOR UNKNOWN INDICATION
     Route: 065

REACTIONS (11)
  - Rhinorrhoea [Unknown]
  - Sneezing [Unknown]
  - Aspiration [Unknown]
  - Intentional product use issue [Unknown]
  - Pain in jaw [Recovering/Resolving]
  - Weight decreased [Recovering/Resolving]
  - Gingival recession [Unknown]
  - No adverse event [Unknown]
  - Off label use [Unknown]
  - Swelling face [Unknown]
  - Dental caries [Unknown]
